FAERS Safety Report 8819119 (Version 1)
Quarter: 2012Q4

REPORT INFORMATION
  Report Type: 
  Country: US (occurrence: US)
  Receive Date: 20121001
  Receipt Date: 20121001
  Transmission Date: 20130627
  Serious: Yes (Other)
  Sender: FDA-Public Use
  Company Number: US-JNJFOC-20120910278

PATIENT
  Age: 34 Year
  Sex: Female
  Weight: 67.13 kg

DRUGS (4)
  1. REMICADE [Suspect]
     Indication: ANKYLOSING SPONDYLITIS
     Route: 042
     Dates: start: 20120829
  2. VALIUM [Concomitant]
     Indication: ANXIETY
     Route: 065
  3. SULFA-TRIMETHOPRIM [Concomitant]
     Indication: URINARY TRACT INFECTION
     Route: 065
  4. COPPER IUD [Concomitant]
     Indication: CONTRACEPTION
     Route: 065

REACTIONS (1)
  - Weight increased [Recovering/Resolving]
